FAERS Safety Report 4386267-7 (Version None)
Quarter: 2004Q2

REPORT INFORMATION
  Report Type: 
  Country: None (occurrence: None)
  Receive Date: 20040623
  Receipt Date: 20040616
  Transmission Date: 20050107
  Serious: Yes (Death)
  Sender: FDA-Public Use
  Company Number: JP-JNJFOC-20040600774

PATIENT
  Age: 80 Year
  Sex: Male
  Weight: 65 kg

DRUGS (7)
  1. LEVOFLOXACIN [Suspect]
     Indication: BRONCHITIS ACUTE
     Dosage: 500 MG, 2 IN 1 DAY, ORAL
     Route: 048
     Dates: start: 20040406, end: 20040415
  2. VASERETIC [Concomitant]
  3. LASIX [Concomitant]
  4. ALLOPURINOL [Concomitant]
  5. DIAMICRON (GLICLAZIDE) [Concomitant]
  6. FLIXOTIDE (FLUTICASONE) [Concomitant]
  7. FORADIL (FORMOTEROL FUMURATE) [Concomitant]

REACTIONS (3)
  - COMPLETED SUICIDE [None]
  - PHLEBOTOMY [None]
  - PROSTATE CANCER METASTATIC [None]
